FAERS Safety Report 10048448 (Version 2)
Quarter: 2014Q1

REPORT INFORMATION
  Report Type: Report from Study
  Country: CA (occurrence: CA)
  Receive Date: 20140331
  Receipt Date: 20140331
  Transmission Date: 20141002
  Serious: Yes (Other)
  Sender: FDA-Public Use
  Company Number: CA-ALEXION-A201400651

PATIENT
  Sex: 0

DRUGS (9)
  1. SOLIRIS [Suspect]
     Indication: PAROXYSMAL NOCTURNAL HAEMOGLOBINURIA
     Dosage: 600 MG, QW
     Route: 042
     Dates: start: 20130523, end: 20130613
  2. SOLIRIS [Suspect]
     Dosage: 900 MG, Q2W
     Route: 042
     Dates: start: 20130620
  3. SOLIRIS [Suspect]
     Dosage: 900 MG, Q2W
  4. NEORAL [Concomitant]
     Indication: IMMUNOSUPPRESSANT DRUG THERAPY
     Dosage: 200 MG, QD
     Route: 048
     Dates: start: 20130429
  5. NEORAL [Concomitant]
     Dosage: 50 MG, QD
     Route: 048
     Dates: start: 20130429
  6. AMLODIPINE [Concomitant]
     Indication: HYPERTENSION
     Dosage: 7.5 MG, QD
     Route: 048
     Dates: start: 20130417
  7. RAMIPRIL [Concomitant]
     Indication: HYPERTENSION
     Dosage: 10 MG, QD
     Route: 048
     Dates: start: 20130402
  8. PAROXETINE [Concomitant]
     Indication: DEPRESSION
     Dosage: 20 MG, QD
     Route: 048
     Dates: start: 20130402
  9. CILOXAN [Concomitant]
     Indication: EYE INFLAMMATION
     Dosage: EYE OINTMENT BOTH EYES 1 APPLICATION TIMES 2 MONTHS
     Route: 047
     Dates: start: 20131105

REACTIONS (2)
  - Haemoglobin decreased [Recovered/Resolved]
  - Haemoglobin decreased [Unknown]
